FAERS Safety Report 8624486 (Version 2)
Quarter: 2014Q1

REPORT INFORMATION
  Report Type: Spontaneous
  Country: US (occurrence: None)
  Receive Date: 20120323
  Receipt Date: 20130305
  Transmission Date: 20141002
  Serious: Yes (Hospitalization, Other)
  Sender: FDA-Public Use
  Company Number: 163-21880-11083277

PATIENT
  Age: 70 Year
  Sex: Male

DRUGS (21)
  1. REVLIMID [Suspect]
     Indication: PLASMA CELL MYELOMA
     Dosage: 15 MG, 1 IN 1 D, PO 10 MG, 1 IN 1 D, PO 25 MG, 1 IN 1 D, PO
     Route: 048
     Dates: start: 20110203
  2. VELCADE (BORTEZOMIB) [Concomitant]
  3. IGG (IMMUNOGLOBULIN) [Concomitant]
  4. BACTRIM (BACTRIM) [Concomitant]
  5. BABY ASPIRIN (ACETYLSALICYLIC ACID) [Concomitant]
  6. CELEBREX (CELEXOCIB) [Concomitant]
  7. PACKED RED BLOOD CELLS (RED BLOOD CELLS, CONCENTRATED) [Concomitant]
  8. CYMBALTA (DULOXETINE HYDROCHLORIDE) [Concomitant]
  9. DURAGESIC (FENTANYL) [Concomitant]
  10. ELAVIL (AMITRIPTYLINE) [Concomitant]
  11. LYRICA (PREGABALIN) [Concomitant]
  12. METHADONE (METHADONE) [Concomitant]
  13. XANAX (ALRPAZOLAM) [Concomitant]
  14. COLACE (DOCUSATE SODIUM) [Concomitant]
  15. PRILOSEC (OMEPRAZOLE) [Concomitant]
  16. LANTUS (INSULIN GLARGINE) [Concomitant]
  17. MIRALAX (MACROGOL) [Concomitant]
  18. MORPHINE SULFATE [Concomitant]
  19. VALTREX (VALACICLOVIR HYDROCHLORIDE) [Concomitant]
  20. PERIDEX (CHLORHEXIDINE GLUCONATE) [Concomitant]
  21. OXYGEN (OXYGEN) [Concomitant]

REACTIONS (6)
  - Respiratory failure [None]
  - Pancytopenia [None]
  - Hypotension [None]
  - Renal failure acute [None]
  - Pneumonia [None]
  - Pneumonia staphylococcal [None]
